FAERS Safety Report 16082937 (Version 3)
Quarter: 2020Q3

REPORT INFORMATION
  Report Type: Other
  Country: US (occurrence: US)
  Receive Date: 20190318
  Receipt Date: 20200916
  Transmission Date: 20201102
  Serious: Yes (Other)
  Sender: FDA-Public Use
  Company Number: US-ROCHE-2277551

PATIENT
  Age: 53 Year
  Sex: Female
  Weight: 74.91 kg

DRUGS (15)
  1. OCREVUS [Suspect]
     Active Substance: OCRELIZUMAB
     Indication: PROGRESSIVE MULTIPLE SCLEROSIS
     Dosage: FIRST HALF DOSE ;ONGOING: NO
     Route: 042
     Dates: start: 20180907
  2. CARVEDILOL. [Concomitant]
     Active Substance: CARVEDILOL
     Dosage: ONGOING: YES
  3. ALENDRONATE [Concomitant]
     Active Substance: ALENDRONATE SODIUM
     Dosage: ONGOING: YES
     Route: 048
  4. MECLIZINE [Concomitant]
     Active Substance: MECLIZINE HYDROCHLORIDE
     Dosage: ONGOING: YES
     Route: 048
  5. DULOXETINE. [Concomitant]
     Active Substance: DULOXETINE
     Dosage: ONGOING: YES
     Route: 048
  6. LEVETIRACETAM. [Concomitant]
     Active Substance: LEVETIRACETAM
     Dosage: ONGOING: YES
     Route: 048
  7. ATORVASTATIN [Concomitant]
     Active Substance: ATORVASTATIN
     Indication: BLOOD CHOLESTEROL INCREASED
     Dosage: ONGOING: YES
     Route: 048
  8. MEMANTINE. [Concomitant]
     Active Substance: MEMANTINE
     Dosage: ONGOING: YES
     Route: 048
  9. OCREVUS [Suspect]
     Active Substance: OCRELIZUMAB
     Indication: RELAPSING MULTIPLE SCLEROSIS
     Dosage: SECOND HALF DOSE ;ONGOING: UNKNOWN
     Route: 042
     Dates: start: 20180921
  10. METFORMIN [Concomitant]
     Active Substance: METFORMIN HYDROCHLORIDE
     Dosage: ONGOING: YES
  11. PREDNISONE. [Concomitant]
     Active Substance: PREDNISONE
     Dosage: 3.5 5 MG TABLETS TAKEN QD ;ONGOING: YES
     Route: 048
  12. POTASSIUM CITRATE. [Concomitant]
     Active Substance: POTASSIUM CITRATE
     Indication: NEPHROLITHIASIS
     Dosage: ONGOING: YES
     Route: 048
     Dates: start: 20190122
  13. OCREVUS [Suspect]
     Active Substance: OCRELIZUMAB
     Route: 042
     Dates: start: 20180823, end: 20190429
  14. PANTOPRAZOLE [Concomitant]
     Active Substance: PANTOPRAZOLE
     Dosage: ONGOING: YES
     Route: 048
  15. VESICARE [Concomitant]
     Active Substance: SOLIFENACIN SUCCINATE
     Dosage: ONGOING: YES
     Route: 048

REACTIONS (3)
  - Off label use [Unknown]
  - Urinary tract infection [Recovered/Resolved]
  - Intentional product use issue [Unknown]

NARRATIVE: CASE EVENT DATE: 20190111
